FAERS Safety Report 7559018-2 (Version None)
Quarter: 2011Q2

REPORT INFORMATION
  Report Type: 
  Country: None (occurrence: None)
  Receive Date: 20110621
  Receipt Date: 20110615
  Transmission Date: 20111010
  Serious: Yes (Other)
  Sender: FDA-Public Use
  Company Number: US-PFIZER INC-2011131737

PATIENT
  Sex: Female
  Weight: 150.57 kg

DRUGS (2)
  1. NEURONTIN [Suspect]
     Indication: NEUROPATHY PERIPHERAL
     Dosage: 300 MG, 4X/DAY
     Route: 048
     Dates: start: 20110501, end: 20110613
  2. NEURONTIN [Suspect]
     Indication: PAIN IN EXTREMITY

REACTIONS (2)
  - TREMOR [None]
  - WEIGHT INCREASED [None]
